FAERS Safety Report 11498267 (Version 1)
Quarter: 2015Q3

REPORT INFORMATION
  Report Type: Spontaneous
  Country: AU (occurrence: AU)
  Receive Date: 20150911
  Receipt Date: 20150911
  Transmission Date: 20151125
  Serious: Yes (Death, Hospitalization, Other)
  Sender: FDA-Public Use
  Company Number: AU-ACTAVIS PTY LTD-2015-12289

PATIENT
  Age: 57 Year
  Sex: Female

DRUGS (4)
  1. MYCOPHENOLATE MOFETIL (UNKNOWN) [Suspect]
     Active Substance: MYCOPHENOLATE MOFETIL
     Indication: IMMUNOSUPPRESSANT DRUG THERAPY
     Dosage: 500 MG, BID
     Route: 065
  2. AZATHIOPRINE (UNKNOWN) [Suspect]
     Active Substance: AZATHIOPRINE
     Indication: IMMUNOSUPPRESSANT DRUG THERAPY
     Dosage: UNK
     Route: 065
  3. TACROLIMUS (UNKNOWN) [Suspect]
     Active Substance: TACROLIMUS
     Indication: IMMUNOSUPPRESSANT DRUG THERAPY
     Dosage: LOW DOSE AIMING A TROUGH LEVEL OF 5 MCG/L
     Route: 065
  4. PREDNISOLONE (UNKNOWN) [Suspect]
     Active Substance: PREDNISOLONE
     Indication: IMMUNOSUPPRESSANT DRUG THERAPY
     Dosage: 7.5 MG, DAILY
     Route: 065

REACTIONS (14)
  - Bronchopulmonary aspergillosis [Fatal]
  - Aplastic anaemia [Fatal]
  - Burkholderia infection [Unknown]
  - Pneumocystis jirovecii pneumonia [Unknown]
  - Actinomycosis [Unknown]
  - Urinary tract infection [Unknown]
  - Gastroenteritis salmonella [Unknown]
  - Septic embolus [Unknown]
  - Peripheral ischaemia [Unknown]
  - Pneumonia cytomegaloviral [Unknown]
  - Splenic infarction [Unknown]
  - Bone marrow failure [Fatal]
  - Sepsis [Unknown]
  - Wound infection staphylococcal [Unknown]

NARRATIVE: CASE EVENT DATE: 2009
